FAERS Safety Report 4921454-8 (Version None)
Quarter: 2006Q1

REPORT INFORMATION
  Report Type: 
  Country: None (occurrence: None)
  Receive Date: 20060224
  Receipt Date: 20051222
  Transmission Date: 20060701
  Serious: Yes (Hospitalization, Other)
  Sender: FDA-Public Use
  Company Number: JP-BRISTOL-MYERS SQUIBB COMPANY-13229331

PATIENT
  Age: 69 Year
  Sex: Female
  Weight: 74 kg

DRUGS (13)
  1. MEVALOTIN [Suspect]
     Indication: HYPERLIPIDAEMIA
     Route: 048
     Dates: start: 20051205, end: 20051221
  2. PARIET [Concomitant]
     Indication: REFLUX OESOPHAGITIS
     Route: 048
  3. TOYOFAROL [Concomitant]
     Dates: end: 20051204
  4. SOLANAX [Concomitant]
     Dates: end: 20051204
  5. GASTER D [Concomitant]
     Dates: end: 20051204
  6. NORVASC [Concomitant]
     Dates: end: 20051204
  7. ALLOPURINOL [Concomitant]
     Indication: HYPERURICAEMIA
     Route: 048
  8. LIPOVAS [Concomitant]
     Dates: end: 20051204
  9. ALOSENN [Concomitant]
  10. AMLODIN [Concomitant]
     Indication: HYPERTENSION
     Route: 048
     Dates: start: 20051205
  11. ONEALFA [Concomitant]
     Route: 048
     Dates: start: 20051205
  12. PURSENNID [Concomitant]
     Indication: CONSTIPATION
     Route: 048
     Dates: start: 20051205
  13. SPIRIVA [Concomitant]
     Indication: BRONCHIECTASIS
     Dates: end: 20051221

REACTIONS (2)
  - DEPRESSED LEVEL OF CONSCIOUSNESS [None]
  - RHABDOMYOLYSIS [None]
